FAERS Safety Report 5525921-8 (Version None)
Quarter: 2007Q4

REPORT INFORMATION
  Report Type: 
  Country: None (occurrence: None)
  Receive Date: 20071126
  Receipt Date: 20071121
  Transmission Date: 20080405
  Serious: Yes (Other)
  Sender: FDA-Public Use
  Company Number: US-SANOFI-SYNTHELABO-A03200706664

PATIENT
  Age: 59 Year
  Sex: Male

DRUGS (6)
  1. NOVOLOG [Concomitant]
     Dosage: UNK
     Route: 065
  2. MINOXIDIL [Concomitant]
     Dosage: UNK
     Route: 065
  3. LISINOPRIL [Concomitant]
     Dosage: UNK
     Route: 065
  4. HYDROCHLOROTHIAZIDE [Concomitant]
     Dosage: UNK
     Route: 065
  5. LIPITOR [Concomitant]
     Dosage: UNK
     Route: 065
  6. PLAVIX [Suspect]
     Indication: CAROTID ARTERY STENT INSERTION
     Route: 048
     Dates: start: 20071001, end: 20071118

REACTIONS (6)
  - DEPRESSION [None]
  - DYSPNOEA [None]
  - EPISTAXIS [None]
  - INSOMNIA [None]
  - NASAL CONGESTION [None]
  - SUICIDAL IDEATION [None]
